FAERS Safety Report 5508604-X (Version None)
Quarter: 2007Q4

REPORT INFORMATION
  Report Type: 
  Country: None (occurrence: None)
  Receive Date: 20071031
  Receipt Date: 20070724
  Transmission Date: 20080405
  Serious: No
  Sender: FDA-Public Use
  Company Number: 2007PV033183

PATIENT
  Age: 60 Year
  Sex: Male

DRUGS (5)
  1. SYMLIN [Suspect]
     Indication: TYPE 1 DIABETES MELLITUS
     Dosage: 90 MCG;TID;SC : ;SC : 15 MCG : 120 MCG;TID;SC
     Route: 058
     Dates: start: 20070701, end: 20070701
  2. SYMLIN [Suspect]
     Indication: TYPE 1 DIABETES MELLITUS
     Dosage: 90 MCG;TID;SC : ;SC : 15 MCG : 120 MCG;TID;SC
     Route: 058
     Dates: start: 20070702, end: 20070701
  3. SYMLIN [Suspect]
     Indication: TYPE 1 DIABETES MELLITUS
     Dosage: 90 MCG;TID;SC : ;SC : 15 MCG : 120 MCG;TID;SC
     Route: 058
     Dates: start: 20070721, end: 20070701
  4. SYMLIN [Suspect]
     Indication: TYPE 1 DIABETES MELLITUS
     Dosage: 90 MCG;TID;SC : ;SC : 15 MCG : 120 MCG;TID;SC
     Route: 058
     Dates: start: 20070726
  5. HUMALOG [Concomitant]

REACTIONS (4)
  - ABDOMINAL DISTENSION [None]
  - BLOOD GLUCOSE FLUCTUATION [None]
  - DECREASED APPETITE [None]
  - DRUG EFFECT DECREASED [None]
